FAERS Safety Report 5381080-6 (Version None)
Quarter: 2007Q3

REPORT INFORMATION
  Report Type: 
  Country: None (occurrence: None)
  Receive Date: 20070706
  Receipt Date: 20070628
  Transmission Date: 20080115
  Serious: Yes (Death)
  Sender: FDA-Public Use
  Company Number: FR-PFIZER INC-2007032579

PATIENT
  Sex: Female
  Weight: 74 kg

DRUGS (7)
  1. GENOTONORM [Suspect]
     Indication: HYPOPITUITARISM
  2. LEVOTHYROXINE SODIUM [Concomitant]
     Indication: HYPOTHYROIDISM
     Dosage: DAILY DOSE:100
     Route: 048
  3. HYDROCORTISONE [Concomitant]
     Indication: ADRENAL INSUFFICIENCY
     Route: 048
  4. PLAVIX [Concomitant]
     Indication: CARDIOVASCULAR EVENT PROPHYLAXIS
     Route: 048
  5. COAPROVEL [Concomitant]
     Indication: HYPERTENSION
     Route: 048
  6. ZANIDIP [Concomitant]
     Indication: HYPERTENSION
     Route: 048
  7. LIPANTHYL [Concomitant]
     Indication: DYSLIPIDAEMIA
     Route: 048

REACTIONS (1)
  - ADRENOCORTICAL INSUFFICIENCY ACUTE [None]
